FAERS Safety Report 7524766-7 (Version None)
Quarter: 2011Q2

REPORT INFORMATION
  Report Type: 
  Country: None (occurrence: None)
  Receive Date: 20110525
  Receipt Date: 20110519
  Transmission Date: 20111010
  Serious: Yes (Other)
  Sender: FDA-Public Use
  Company Number: 2011SP023204

PATIENT
  Age: 45 Year
  Sex: Male

DRUGS (3)
  1. TEMODAL [Suspect]
     Indication: GLIOMA
     Dosage: 120 MG, QD, PO; 280 MG, QD, PO; 360 MG QD, PO
     Route: 048
     Dates: start: 20110401
  2. TEMODAL [Suspect]
     Indication: GLIOMA
     Dosage: 120 MG, QD, PO; 280 MG, QD, PO; 360 MG QD, PO
     Route: 048
     Dates: start: 20110101
  3. TEMODAL [Suspect]
     Indication: GLIOMA
     Dosage: 120 MG, QD, PO; 280 MG, QD, PO; 360 MG QD, PO
     Route: 048
     Dates: start: 20110226, end: 20110409

REACTIONS (4)
  - ARTHRALGIA [None]
  - MUSCULAR WEAKNESS [None]
  - BONE PAIN [None]
  - BACK PAIN [None]
